FAERS Safety Report 4521179-7 (Version None)
Quarter: 2004Q4

REPORT INFORMATION
  Report Type: 
  Country: None (occurrence: None)
  Receive Date: 20041208
  Receipt Date: 20041129
  Transmission Date: 20050328
  Serious: Yes (Hospitalization)
  Sender: FDA-Public Use
  Company Number: US-MERCK-0411USA04096

PATIENT
  Age: 57 Year
  Sex: Female

DRUGS (6)
  1. VIOXX [Suspect]
     Indication: ARTHRITIS
     Route: 048
     Dates: end: 20040601
  2. PREMARIN [Concomitant]
     Route: 065
  3. PAROXETINE [Concomitant]
     Route: 065
  4. CYPROHEPTADINE HYDROCHLORIDE [Concomitant]
     Route: 048
  5. FAMOTIDINE [Concomitant]
     Route: 048
  6. MECLOFENAMATE SODIUM [Concomitant]
     Route: 065

REACTIONS (2)
  - LIVER DISORDER [None]
  - TOTAL LUNG CAPACITY DECREASED [None]
